FAERS Safety Report 9227253 (Version 1)
Quarter: 2013Q2

REPORT INFORMATION
  Report Type: Spontaneous
  Country: IL (occurrence: IL)
  Receive Date: 20130412
  Receipt Date: 20130412
  Transmission Date: 20140414
  Serious: Yes (Hospitalization)
  Sender: FDA-Public Use
  Company Number: PHHY2013IL033593

PATIENT
  Age: 67 Year
  Sex: Female

DRUGS (2)
  1. SANDOSTATIN LAR [Suspect]
     Indication: CARCINOID TUMOUR
     Dosage: 30 MG, PER 4 WEEKS
     Dates: start: 20101202
  2. SANDOSTATIN LAR [Suspect]
     Dosage: 30 MG, PER 4 WEEK
     Dates: start: 20130404

REACTIONS (1)
  - Transient ischaemic attack [Unknown]
